FAERS Safety Report 16912590 (Version 3)
Quarter: 2022Q2

REPORT INFORMATION
  Report Type: Report from Study
  Country: US (occurrence: US)
  Receive Date: 20191014
  Receipt Date: 20220624
  Transmission Date: 20220720
  Serious: Yes (Hospitalization)
  Sender: FDA-Public Use
  Company Number: US-TESAROUBC-2019-TSO02797-US

PATIENT
  Age: 66 Year
  Sex: Female
  Weight: 69.44 kg

DRUGS (5)
  1. NIRAPARIB [Suspect]
     Active Substance: NIRAPARIB
     Indication: Neoplasm
     Dosage: 300 MG
     Route: 048
     Dates: start: 20190415, end: 20190630
  2. NIRAPARIB [Suspect]
     Active Substance: NIRAPARIB
     Dosage: UNK
     Route: 048
     Dates: end: 20190701
  3. HEPARIN [Concomitant]
     Active Substance: HEPARIN SODIUM
     Indication: Prophylaxis
     Dosage: 5000 DF, TID
     Route: 058
     Dates: start: 20190725, end: 20190731
  4. HEPARIN [Concomitant]
     Active Substance: HEPARIN SODIUM
     Indication: Embolism
  5. ZOFRAN [Concomitant]
     Active Substance: ONDANSETRON HYDROCHLORIDE
     Indication: Nausea
     Dosage: 4 MG, Z-PRN
     Route: 042
     Dates: start: 20190725, end: 20190726

REACTIONS (1)
  - Acute hepatic failure [Recovered/Resolved]

NARRATIVE: CASE EVENT DATE: 20190726
